FAERS Safety Report 15856927 (Version 2)
Quarter: 2019Q1

REPORT INFORMATION
  Report Type: Spontaneous
  Country: RU (occurrence: RU)
  Receive Date: 20190123
  Receipt Date: 20190125
  Transmission Date: 20190417
  Serious: Yes (Life-Threatening)
  Sender: FDA-Public Use
  Company Number: RU-ABBVIE-19S-251-2634107-00

PATIENT
  Age: 18 Year
  Sex: Female

DRUGS (3)
  1. ULTANE [Suspect]
     Active Substance: SEVOFLURANE
     Indication: GENERAL ANAESTHESIA
     Route: 055
     Dates: start: 20190118, end: 20190118
  2. CEFAZOLIN [Suspect]
     Active Substance: CEFAZOLIN
     Indication: ANTIBIOTIC THERAPY
     Route: 030
     Dates: start: 20190118, end: 20190120
  3. PIPECURONIUM BROMIDE. [Concomitant]
     Active Substance: PIPECURONIUM BROMIDE
     Indication: MUSCLE RELAXANT THERAPY
     Dates: start: 20190118, end: 20190118

REACTIONS (2)
  - Aspartate aminotransferase increased [Recovering/Resolving]
  - Alanine aminotransferase increased [Recovering/Resolving]

NARRATIVE: CASE EVENT DATE: 20190118
